FAERS Safety Report 9321629 (Version 3)
Quarter: 2013Q3

REPORT INFORMATION
  Report Type: Report from Study
  Country: CN (occurrence: CN)
  Receive Date: 20130531
  Receipt Date: 20130809
  Transmission Date: 20140515
  Serious: Yes (Death, Hospitalization)
  Sender: FDA-Public Use
  Company Number: CN-SANOFI-AVENTIS-2013SA053659

PATIENT
  Age: 55 Year
  Sex: Male
  Weight: 68 kg

DRUGS (47)
  1. BLINDED THERAPY [Suspect]
     Indication: COLORECTAL CANCER METASTATIC
     Route: 042
     Dates: start: 20130501, end: 20130501
  2. BLINDED THERAPY [Suspect]
     Indication: COLORECTAL CANCER METASTATIC
     Route: 042
     Dates: start: 20130515, end: 20130515
  3. 5-FU [Suspect]
     Indication: COLORECTAL CANCER METASTATIC
     Route: 040
     Dates: start: 20130501, end: 20130501
  4. 5-FU [Suspect]
     Indication: COLORECTAL CANCER METASTATIC
     Route: 041
     Dates: start: 20130501, end: 20130503
  5. 5-FU [Suspect]
     Indication: COLORECTAL CANCER METASTATIC
     Route: 040
     Dates: start: 20130515, end: 20130515
  6. 5-FU [Suspect]
     Indication: COLORECTAL CANCER METASTATIC
     Route: 040
     Dates: start: 20130515, end: 20130515
  7. IRINOTECAN [Suspect]
     Indication: COLORECTAL CANCER METASTATIC
     Route: 042
     Dates: start: 20130501, end: 20130501
  8. IRINOTECAN [Suspect]
     Indication: COLORECTAL CANCER METASTATIC
     Route: 042
     Dates: start: 20130515, end: 20130515
  9. LEUCOVORIN [Suspect]
     Indication: COLORECTAL CANCER METASTATIC
     Route: 042
     Dates: start: 20130501, end: 20130501
  10. LEUCOVORIN [Suspect]
     Indication: COLORECTAL CANCER METASTATIC
     Route: 042
     Dates: start: 20130515, end: 20130515
  11. OXYCODONE HYDROCHLORIDE [Concomitant]
     Dates: start: 20130424
  12. ORNITHINE ASPARTATE [Concomitant]
     Dates: start: 20130425, end: 20130506
  13. ORNITHINE ASPARTATE [Concomitant]
     Dates: start: 20130514
  14. GLYCYRRHIZIC ACID [Concomitant]
     Dates: start: 20130425, end: 20130506
  15. GLYCYRRHIZIC ACID [Concomitant]
     Dates: start: 20130514
  16. COENZYME A [Concomitant]
     Dates: start: 20130425, end: 20130506
  17. COENZYME A [Concomitant]
     Dates: start: 20130514
  18. HALOPERIDOL [Concomitant]
     Dates: start: 20130515, end: 20130519
  19. AMINO ACIDS [Concomitant]
     Dates: start: 20130512, end: 20130513
  20. AMINO ACIDS [Concomitant]
     Dates: start: 20130503, end: 20130503
  21. FAT EMULSIONS [Concomitant]
     Dates: start: 20130512, end: 20130513
  22. FAT EMULSIONS [Concomitant]
     Dates: start: 20130503, end: 20130503
  23. VITAMINS NOS [Concomitant]
     Dates: start: 20130512
  24. VITAMINS NOS [Concomitant]
     Dates: start: 20130503, end: 20130503
  25. AMINIC [Concomitant]
     Dates: start: 20130512, end: 20130513
  26. AMINIC [Concomitant]
     Dates: start: 20130521
  27. AMINIC [Concomitant]
     Dates: start: 20130504, end: 20130506
  28. TROPISETRON HYDROCHLORIDE [Concomitant]
     Dates: start: 20130514, end: 20130521
  29. TROPISETRON HYDROCHLORIDE [Concomitant]
     Dates: start: 20130430, end: 20130506
  30. LANSOPRAZOLE [Concomitant]
     Dates: start: 20130514
  31. LANSOPRAZOLE [Concomitant]
     Dates: start: 20130430, end: 20130506
  32. LORAZEPAM [Concomitant]
     Dates: start: 20130515, end: 20130519
  33. DIPHENHYDRAMINE HYDROCHLORIDE [Concomitant]
     Dates: start: 20130515, end: 20130519
  34. LOPERAMIDE [Concomitant]
     Dates: start: 20130517
  35. OCTREOTIDE ACETATE [Concomitant]
     Dates: start: 20130518
  36. MINERAL SUPPLEMENTS [Concomitant]
     Dates: start: 20130518
  37. DEXAMETHASONE [Concomitant]
     Dates: start: 20130519, end: 20130523
  38. DEXAMETHASONE [Concomitant]
     Dates: start: 20130504, end: 20130506
  39. POTASSIUM PHOSPHATE MONOBASIC [Concomitant]
     Dates: start: 20130520
  40. TRIGLYCERIDES [Concomitant]
     Dates: start: 20130521
  41. TRIGLYCERIDES [Concomitant]
     Dates: start: 20130503, end: 20130503
  42. ALBUMIN [Concomitant]
     Dates: start: 20130521, end: 20130523
  43. OCTREOTIDE [Concomitant]
     Dates: start: 20130521
  44. DIFENE [Concomitant]
     Dates: start: 20130514
  45. SACCHAROMYCES BOULARDII [Concomitant]
     Dates: start: 20130522, end: 20130523
  46. GLUTAMINE [Concomitant]
     Dates: start: 20130522, end: 20130522
  47. LEVOCARNITINE [Concomitant]
     Dates: start: 20130522

REACTIONS (1)
  - Bone marrow failure [Fatal]
